FAERS Safety Report 10668666 (Version 1)
Quarter: 2014Q4

REPORT INFORMATION
  Report Type: Spontaneous
  Country: US (occurrence: None)
  Receive Date: 20141217
  Receipt Date: 20141217
  Transmission Date: 20150529
  Serious: No
  Sender: FDA-Public Use
  Company Number: 2014CT000122

PATIENT
  Age: 30 Year
  Sex: Female
  Weight: 90.72 kg

DRUGS (4)
  1. KORLYM [Suspect]
     Active Substance: MIFEPRISTONE
     Indication: CUSHING^S SYNDROME
     Route: 048
     Dates: start: 20140807
  2. TOPROL XL [Concomitant]
     Active Substance: METOPROLOL SUCCINATE
  3. WELLBUTRIN [Concomitant]
     Active Substance: BUPROPION HYDROCHLORIDE
  4. TRAZODONE [Concomitant]
     Active Substance: TRAZODONE HYDROCHLORIDE

REACTIONS (2)
  - Tremor [None]
  - Nausea [None]

NARRATIVE: CASE EVENT DATE: 20140809
